FAERS Safety Report 15741477 (Version 1)
Quarter: 2018Q4

REPORT INFORMATION
  Report Type: Report from Study
  Country: FR (occurrence: FR)
  Receive Date: 20181219
  Receipt Date: 20181219
  Transmission Date: 20190205
  Serious: Yes (Hospitalization, Other)
  Sender: FDA-Public Use
  Company Number: FR-JAZZ-2018-FR-013709

PATIENT

DRUGS (6)
  1. VINCRISTINE [Suspect]
     Active Substance: VINCRISTINE
     Indication: LEUKAEMIA
     Dosage: 1.29 MG QD
     Route: 042
     Dates: start: 20180719, end: 20180719
  2. CORTANCYL [Concomitant]
     Active Substance: PREDNISONE
     Indication: LEUKAEMIA
     Dosage: 35 MG QD
     Route: 048
     Dates: start: 20180719, end: 20180724
  3. VINCRISTINE [Suspect]
     Active Substance: VINCRISTINE
     Dosage: 1.29 MG, QD
     Route: 042
     Dates: start: 20180914, end: 20180914
  4. METHOTREXATE. [Concomitant]
     Active Substance: METHOTREXATE
     Indication: LEUKAEMIA
     Dosage: 15 MG QD
     Dates: start: 20180703, end: 20180724
  5. DEFITELIO [Suspect]
     Active Substance: DEFIBROTIDE SODIUM
     Indication: VENOOCCLUSIVE DISEASE
     Dosage: 25 MG/KG, QD
     Route: 042
     Dates: start: 20180611, end: 20180702
  6. PURINETHOL [Concomitant]
     Active Substance: MERCAPTOPURINE
     Indication: LEUKAEMIA
     Dosage: 50 MG QD
     Route: 048
     Dates: start: 20180703, end: 20180724

REACTIONS (10)
  - Inflammation [Unknown]
  - Febrile bone marrow aplasia [Recovered/Resolved]
  - Ear infection [Recovering/Resolving]
  - Bacteraemia [Unknown]
  - Staphylococcus test [Recovered/Resolved]
  - Contusion [Not Recovered/Not Resolved]
  - Klebsiella infection [Not Recovered/Not Resolved]
  - Immunoglobulins decreased [Unknown]
  - Pneumonia klebsiella [Unknown]
  - Asthenia [Unknown]

NARRATIVE: CASE EVENT DATE: 2018
